FAERS Safety Report 24638386 (Version 1)
Quarter: 2024Q4

REPORT INFORMATION
  Report Type: Spontaneous
  Country: US (occurrence: None)
  Receive Date: 20241119
  Receipt Date: 20241119
  Transmission Date: 20250115
  Serious: No
  Sender: Public
  Company Number: None

PATIENT
  Age: 67 Year
  Sex: Male

DRUGS (1)
  1. DARIDOREXANT [Suspect]
     Active Substance: DARIDOREXANT
     Indication: Insomnia
     Dosage: FREQUENCY : AT BEDTIME;?
     Route: 048

REACTIONS (2)
  - Nightmare [None]
  - Drug intolerance [None]

NARRATIVE: CASE EVENT DATE: 20240716
